FAERS Safety Report 5068354-3 (Version None)
Quarter: 2006Q3

REPORT INFORMATION
  Report Type: 
  Country: None (occurrence: None)
  Receive Date: 20060802
  Receipt Date: 20050815
  Transmission Date: 20061208
  Serious: No
  Sender: FDA-Public Use
  Company Number: US-BRISTOL-MYERS SQUIBB COMPANY-13077524

PATIENT
  Age: 82 Year
  Sex: Male
  Weight: 77 kg

DRUGS (3)
  1. COUMADIN [Suspect]
     Indication: CEREBROVASCULAR ACCIDENT
     Dosage: INITIATED ON VARYING DOSES; INCREASED TO 2.5MG TAB 3 X PER WK ALTERN WITH 2.5MG TAB 4 X PER WK
     Dates: start: 20041201
  2. DIGOXIN [Concomitant]
  3. IMDUR [Concomitant]

REACTIONS (1)
  - PROTHROMBIN TIME PROLONGED [None]
